APPROVED DRUG PRODUCT: CIPROFLOXACIN IN DEXTROSE 5% IN PLASTIC CONTAINER
Active Ingredient: CIPROFLOXACIN
Strength: 400MG/200ML
Dosage Form/Route: INJECTABLE;INJECTION
Application: A078431 | Product #001 | TE Code: AP
Applicant: HIKMA FARMACEUTICA (PORTUGAL) SA
Approved: Nov 18, 2009 | RLD: No | RS: No | Type: RX